FAERS Safety Report 4950472-9 (Version None)
Quarter: 2006Q1

REPORT INFORMATION
  Report Type: 
  Country: None (occurrence: None)
  Receive Date: 20060322
  Receipt Date: 20050912
  Transmission Date: 20060701
  Serious: Yes (Death)
  Sender: FDA-Public Use
  Company Number: US-GLAXOSMITHKLINE-A0578756A

PATIENT
  Age: 64 Year
  Sex: Male

DRUGS (1)
  1. ESKALITH [Suspect]
     Indication: BIPOLAR DISORDER
     Dosage: 300MG UNKNOWN
     Route: 048
     Dates: start: 19811007, end: 20030801

REACTIONS (11)
  - ANTIPSYCHOTIC DRUG LEVEL INCREASED [None]
  - BRADYCARDIA [None]
  - DIABETES MELLITUS [None]
  - DISSEMINATED INTRAVASCULAR COAGULATION [None]
  - DUODENAL ULCER HAEMORRHAGE [None]
  - EXSANGUINATION [None]
  - HAEMODIALYSIS [None]
  - HYPOTENSION [None]
  - RECTAL HAEMORRHAGE [None]
  - RENAL FAILURE [None]
  - RENAL FAILURE ACUTE [None]
